FAERS Safety Report 9910519 (Version 6)
Quarter: 2015Q2

REPORT INFORMATION
  Report Type: Report from Study
  Country: US (occurrence: US)
  Receive Date: 20140219
  Receipt Date: 20150526
  Transmission Date: 20150821
  Serious: Yes (Hospitalization, Other)
  Sender: FDA-Public Use
  Company Number: US-SA-2013SA108279

PATIENT
  Age: 42 Year
  Sex: Female

DRUGS (14)
  1. ROBAXIN [Concomitant]
     Active Substance: METHOCARBAMOL
  2. CITRACAL + D [Concomitant]
     Active Substance: CALCIUM CITRATE\VITAMIN D
  3. CYMBALTA [Concomitant]
     Active Substance: DULOXETINE HYDROCHLORIDE
  4. NEXIUM [Concomitant]
     Active Substance: ESOMEPRAZOLE MAGNESIUM
  5. LIDODERM [Concomitant]
     Active Substance: LIDOCAINE
  6. ZOVIRAX [Concomitant]
     Active Substance: ACYCLOVIR
  7. BACLOFEN. [Concomitant]
     Active Substance: BACLOFEN
  8. COREG [Concomitant]
     Active Substance: CARVEDILOL
  9. ZOFRAN [Concomitant]
     Active Substance: ONDANSETRON HYDROCHLORIDE
  10. ULTRAM [Concomitant]
     Active Substance: TRAMADOL HYDROCHLORIDE
  11. NEURONTIN [Concomitant]
     Active Substance: GABAPENTIN
  12. KETOROLAC [Concomitant]
     Active Substance: KETOROLAC\KETOROLAC TROMETHAMINE
  13. AUBAGIO [Suspect]
     Active Substance: TERIFLUNOMIDE
     Indication: MULTIPLE SCLEROSIS
     Route: 048
     Dates: start: 20131017
  14. LACTOBACILLUS ACIDOPHILUS [Concomitant]
     Active Substance: LACTOBACILLUS ACIDOPHILUS

REACTIONS (19)
  - Road traffic accident [Unknown]
  - Muscle spasms [Unknown]
  - Multiple sclerosis relapse [Unknown]
  - Pruritus [Unknown]
  - Nausea [Not Recovered/Not Resolved]
  - Myalgia [Unknown]
  - Unevaluable event [Unknown]
  - Condition aggravated [Unknown]
  - Blood glucose increased [Unknown]
  - Malaise [Unknown]
  - Fatigue [Recovering/Resolving]
  - Headache [Unknown]
  - Nuclear magnetic resonance imaging abnormal [Not Recovered/Not Resolved]
  - Hypertension [Unknown]
  - Blood potassium decreased [Unknown]
  - Limb injury [Unknown]
  - Demyelination [Unknown]
  - Diarrhoea [Unknown]
  - Neck pain [Unknown]

NARRATIVE: CASE EVENT DATE: 201312
